FAERS Safety Report 10761838 (Version 2)
Quarter: 2015Q1

REPORT INFORMATION
  Report Type: Spontaneous
  Country: PE (occurrence: PE)
  Receive Date: 20150204
  Receipt Date: 20150206
  Transmission Date: 20150721
  Serious: No
  Sender: FDA-Public Use
  Company Number: PE-MERCK-1502PER000879

PATIENT
  Age: 34 Year
  Sex: Male

DRUGS (1)
  1. NASONEX [Suspect]
     Active Substance: MOMETASONE FUROATE
     Indication: HYPERSENSITIVITY
     Dosage: UNK, BID
     Route: 045
     Dates: start: 20141125, end: 20150115

REACTIONS (3)
  - Inappropriate schedule of drug administration [Unknown]
  - Nasal discomfort [Recovered/Resolved]
  - Nasal septal operation [Recovering/Resolving]

NARRATIVE: CASE EVENT DATE: 20141125
